FAERS Safety Report 26051033 (Version 1)
Quarter: 2025Q4

REPORT INFORMATION
  Report Type: Spontaneous
  Country: US (occurrence: US)
  Receive Date: 20251117
  Receipt Date: 20251117
  Transmission Date: 20260118
  Serious: No
  Sender: MERCK SHARP & DOHME LLC
  Company Number: US-009507513-2346407

PATIENT
  Age: 53 Year
  Sex: Female

DRUGS (1)
  1. DELSTRIGO [Suspect]
     Active Substance: DORAVIRINE\LAMIVUDINE\TENOFOVIR DISOPROXIL FUMARATE
     Dosage: 100/300/300 MG
     Dates: start: 202504

REACTIONS (4)
  - Product use complaint [Unknown]
  - No adverse event [Unknown]
  - Product physical issue [Unknown]
  - Product size issue [Unknown]

NARRATIVE: CASE EVENT DATE: 20250101
